FAERS Safety Report 22535520 (Version 2)
Quarter: 2023Q2

REPORT INFORMATION
  Report Type: Spontaneous
  Country: PL (occurrence: PL)
  Receive Date: 20230608
  Receipt Date: 20230622
  Transmission Date: 20230722
  Serious: Yes (Hospitalization)
  Sender: FDA-Public Use
  Company Number: PL-TEVA-2023-PL-2894153

PATIENT
  Age: 38 Year
  Sex: Male

DRUGS (6)
  1. OCTREOTIDE [Suspect]
     Active Substance: OCTREOTIDE
     Indication: Gastrinoma
     Dosage: 30MG EVERY 4 WEEKS
     Route: 065
     Dates: start: 202102
  2. OCTREOTIDE [Suspect]
     Active Substance: OCTREOTIDE
     Indication: Gastrinoma
  3. EVEROLIMUS [Suspect]
     Active Substance: EVEROLIMUS
     Indication: Pancreatic neuroendocrine tumour metastatic
     Dosage: 10 MILLIGRAM DAILY; ONCE A DAY
     Route: 048
     Dates: start: 202102
  4. EVEROLIMUS [Suspect]
     Active Substance: EVEROLIMUS
     Indication: Gastrinoma
  5. FAMOTIDINE [Suspect]
     Active Substance: FAMOTIDINE
     Indication: Gastrinoma
     Route: 065
     Dates: start: 2021
  6. FAMOTIDINE [Suspect]
     Active Substance: FAMOTIDINE
     Indication: Pancreatic neuroendocrine tumour metastatic

REACTIONS (2)
  - Interstitial lung disease [Unknown]
  - Drug ineffective [Unknown]
